APPROVED DRUG PRODUCT: PROMETH VC W/ CODEINE
Active Ingredient: CODEINE PHOSPHATE; PHENYLEPHRINE HYDROCHLORIDE; PROMETHAZINE HYDROCHLORIDE
Strength: 10MG/5ML;5MG/5ML;6.25MG/5ML
Dosage Form/Route: SYRUP;ORAL
Application: A088764 | Product #001
Applicant: CHARTWELL RX SCIENCES LLC
Approved: Oct 31, 1984 | RLD: No | RS: No | Type: DISCN